FAERS Safety Report 7249351-6 (Version None)
Quarter: 2011Q1

REPORT INFORMATION
  Report Type: 
  Country: None (occurrence: None)
  Receive Date: 20110128
  Receipt Date: 20101123
  Transmission Date: 20110831
  Serious: Yes (Hospitalization, Other)
  Sender: FDA-Public Use
  Company Number: US-BAYER-201026422NA

PATIENT
  Sex: Female
  Weight: 79.365 kg

DRUGS (3)
  1. YASMIN [Suspect]
     Dosage: UNK
     Dates: start: 20080509, end: 20080613
  2. YAZ [Suspect]
     Route: 048
     Dates: start: 20071101
  3. YASMIN [Suspect]
     Indication: CONTRACEPTION
     Dosage: UNK
     Route: 048
     Dates: start: 20071101, end: 20080502

REACTIONS (5)
  - PULMONARY INFARCTION [None]
  - PULMONARY EMBOLISM [None]
  - ABDOMINAL PAIN [None]
  - PELVIC VENOUS THROMBOSIS [None]
  - PLEURITIC PAIN [None]
